FAERS Safety Report 23713859 (Version 1)
Quarter: 2024Q2

REPORT INFORMATION
  Report Type: Report from Study
  Country: US (occurrence: US)
  Receive Date: 20240405
  Receipt Date: 20240405
  Transmission Date: 20240716
  Serious: Yes (Hospitalization)
  Sender: FDA-Public Use
  Company Number: US-GILEAD-2024-0664454

PATIENT
  Age: 60 Year
  Sex: Female

DRUGS (43)
  1. AZTREONAM LYSINE [Suspect]
     Active Substance: AZTREONAM LYSINE
     Indication: Cystic fibrosis lung
     Dosage: 75 MG, INHALE 1 VIAL VIA NEBULIZER THREE TIMES DAILY FOR 28 DAYS ON THEN 28 DAYS OFF
     Route: 055
     Dates: start: 20150421
  2. AZTREONAM LYSINE [Suspect]
     Active Substance: AZTREONAM LYSINE
     Dosage: 75MG VIAL VIA NEBULIZER THREE TIMES DAILY FOR 28 DAYS ON THEN 28 DAYS OFF
     Route: 055
     Dates: start: 20131227
  3. URSODIOL [Concomitant]
     Active Substance: URSODIOL
  4. TRAMADOL [Concomitant]
     Active Substance: TRAMADOL\TRAMADOL HYDROCHLORIDE
  5. MUCINEX [Concomitant]
     Active Substance: GUAIFENESIN
  6. CALCIUM [Concomitant]
     Active Substance: CALCIUM
  7. LORATADINE [Concomitant]
     Active Substance: LORATADINE
  8. ZOLOFT [Concomitant]
     Active Substance: SERTRALINE HYDROCHLORIDE
  9. LEVALBUTEROL HYDROCHLORIDE [Concomitant]
     Active Substance: LEVALBUTEROL HYDROCHLORIDE
  10. PANTOPRAZOLE [Concomitant]
     Active Substance: PANTOPRAZOLE
  11. BENTYL [Concomitant]
     Active Substance: DICYCLOMINE HYDROCHLORIDE
  12. ACID REDUCER [CIMETIDINE] [Concomitant]
  13. TRIKAFTA [Concomitant]
     Active Substance: ELEXACAFTOR\IVACAFTOR\TEZACAFTOR
  14. CLARITHROMYCIN [Concomitant]
     Active Substance: CLARITHROMYCIN
  15. OXYCOD [OXYTOCIN] [Concomitant]
  16. SEROQUEL [Concomitant]
     Active Substance: QUETIAPINE FUMARATE
  17. BENZONATATE [Concomitant]
     Active Substance: BENZONATATE
  18. METAXALONE [Concomitant]
     Active Substance: METAXALONE
  19. SERTRALINE [Concomitant]
     Active Substance: SERTRALINE HYDROCHLORIDE
  20. TRAZODONE [Concomitant]
     Active Substance: TRAZODONE HYDROCHLORIDE
  21. PROCHLORPERAZINE [Concomitant]
     Active Substance: PROCHLORPERAZINE
  22. TOPAMAX [Concomitant]
     Active Substance: TOPIRAMATE
  23. LEVAQUIN [Concomitant]
     Active Substance: LEVOFLOXACIN
  24. ACETAMINOPHEN\CODEINE PHOSPHATE [Concomitant]
     Active Substance: ACETAMINOPHEN\CODEINE PHOSPHATE
  25. XIFAXAN [Concomitant]
     Active Substance: RIFAXIMIN
  26. MELATONIN [Concomitant]
     Active Substance: MELATONIN
  27. CARAFATE [Concomitant]
     Active Substance: SUCRALFATE
  28. PANCREAZE [Concomitant]
     Active Substance: PANCRELIPASE AMYLASE\PANCRELIPASE LIPASE\PANCRELIPASE PROTEASE
  29. CYCLOBENZAPRINE [Concomitant]
     Active Substance: CYCLOBENZAPRINE
  30. ELIQUIS [Concomitant]
     Active Substance: APIXABAN
  31. FAMOTIDINE [Concomitant]
     Active Substance: FAMOTIDINE
  32. ADVAIR HFA [Concomitant]
     Active Substance: FLUTICASONE PROPIONATE\SALMETEROL XINAFOATE
  33. GUAIFENESIN [Concomitant]
     Active Substance: GUAIFENESIN
  34. FLONASE [Concomitant]
     Active Substance: FLUTICASONE PROPIONATE
  35. PROMETHAZINE [Concomitant]
     Active Substance: PROMETHAZINE HYDROCHLORIDE
  36. ACETAMINOPHEN\OXYCODONE HYDROCHLORIDE\OXYCODONE TEREPHTHALATE [Concomitant]
     Active Substance: ACETAMINOPHEN\OXYCODONE HYDROCHLORIDE\OXYCODONE TEREPHTHALATE
  37. PREDNISONE [Concomitant]
     Active Substance: PREDNISONE
  38. CRESEMBA [Concomitant]
     Active Substance: ISAVUCONAZONIUM SULFATE
  39. PULMOZYME [Concomitant]
     Active Substance: DORNASE ALFA
  40. LEVALBUTEROL [Concomitant]
     Active Substance: LEVALBUTEROL
  41. CODEINE [Concomitant]
     Active Substance: CODEINE
  42. OXYCODONE [Concomitant]
     Active Substance: OXYCODONE\OXYCODONE HYDROCHLORIDE
  43. PROCHLORPERAZINE MALEATE [Concomitant]
     Active Substance: PROCHLORPERAZINE MALEATE

REACTIONS (3)
  - Condition aggravated [Unknown]
  - Diarrhoea [Unknown]
  - Fatigue [Unknown]
